FAERS Safety Report 5268986-3 (Version None)
Quarter: 2007Q1

REPORT INFORMATION
  Report Type: 
  Country: None (occurrence: None)
  Receive Date: 20061212
  Receipt Date: 20050322
  Transmission Date: 20070707
  Serious: Yes (Hospitalization)
  Sender: FDA-Public Use
  Company Number: 2005UW00546

PATIENT
  Age: 75 Year
  Sex: Male
  Weight: 72.5 kg

DRUGS (7)
  1. ZOLADEX [Suspect]
     Indication: PROSTATE CANCER
     Dosage: 10.8 MG SQ
     Route: 058
     Dates: start: 20041229
  2. ATORVASTATIN CALCIUM [Concomitant]
  3. NIFEDIPINE [Concomitant]
  4. LISINOPRIL [Concomitant]
  5. FLUNISOLIDE [Concomitant]
  6. TERAZOSIN HCL [Concomitant]
  7. MEGESTROL ACETATE [Concomitant]

REACTIONS (3)
  - INJECTION SITE RASH [None]
  - RASH GENERALISED [None]
  - RASH PRURITIC [None]
